FAERS Safety Report 9626160 (Version 1)
Quarter: 2013Q4

REPORT INFORMATION
  Report Type: Spontaneous
  Country: US (occurrence: US)
  Receive Date: 20131016
  Receipt Date: 20131016
  Transmission Date: 20140711
  Serious: Yes (Other)
  Sender: FDA-Public Use
  Company Number: US-ELI_LILLY_AND_COMPANY-US201310002112

PATIENT
  Sex: Female

DRUGS (7)
  1. CYMBALTA [Suspect]
     Indication: DEPRESSION
     Dosage: 30 MG, UNKNOWN
     Dates: start: 2010
  2. CYMBALTA [Suspect]
     Indication: ANXIETY
     Dosage: 120 MG, UNKNOWN
     Dates: start: 2011
  3. CYMBALTA [Suspect]
     Dosage: UNK, UNKNOWN
     Dates: start: 2011
  4. CYMBALTA [Suspect]
     Dosage: 60 MG, UNKNOWN
  5. CYMBALTA [Suspect]
     Dosage: 30 MG, UNKNOWN
  6. CYMBALTA [Suspect]
     Dosage: 20 MG, UNKNOWN
     Dates: start: 201301, end: 20130921
  7. HYDROCHLOROTHIAZIDE [Concomitant]
     Dosage: UNK, UNKNOWN

REACTIONS (20)
  - Tachycardia [Recovering/Resolving]
  - Crying [Recovering/Resolving]
  - Influenza like illness [Recovering/Resolving]
  - Abnormal sensation in eye [Recovering/Resolving]
  - Agitation [Recovering/Resolving]
  - Restless legs syndrome [Recovering/Resolving]
  - Depressed level of consciousness [Unknown]
  - Logorrhoea [Not Recovered/Not Resolved]
  - Depression [Recovering/Resolving]
  - Psychomotor hyperactivity [Not Recovered/Not Resolved]
  - Influenza like illness [Recovered/Resolved]
  - Myalgia [Recovering/Resolving]
  - Hypersomnia [Recovering/Resolving]
  - Mania [Recovering/Resolving]
  - Headache [Recovering/Resolving]
  - Dizziness [Not Recovered/Not Resolved]
  - Disturbance in attention [Unknown]
  - Anger [Recovering/Resolving]
  - Lethargy [Not Recovered/Not Resolved]
  - Drug withdrawal syndrome [Recovering/Resolving]
